FAERS Safety Report 10780340 (Version 1)
Quarter: 2015Q1

REPORT INFORMATION
  Report Type: Spontaneous
  Country: US (occurrence: US)
  Receive Date: 20150210
  Receipt Date: 20150210
  Transmission Date: 20150721
  Serious: No
  Sender: FDA-Public Use
  Company Number: US-GLAXOSMITHKLINE-A1070665A

PATIENT

DRUGS (3)
  1. RADIATION TREATMENT [Concomitant]
     Active Substance: RADIATION THERAPY
  2. TYKERB [Suspect]
     Active Substance: LAPATINIB DITOSYLATE
     Indication: PRODUCT USED FOR UNKNOWN INDICATION
     Dosage: 250 MG, UNKNOWN DOSING
     Route: 065
     Dates: start: 20140312
  3. AROMASIN [Concomitant]
     Active Substance: EXEMESTANE

REACTIONS (1)
  - Pain [Unknown]
